FAERS Safety Report 6506174-0 (Version None)
Quarter: 2009Q4

REPORT INFORMATION
  Report Type: 
  Country: None (occurrence: None)
  Receive Date: 20091218
  Receipt Date: 20091215
  Transmission Date: 20100525
  Serious: Yes (Hospitalization, Other)
  Sender: FDA-Public Use
  Company Number: US-ELI_LILLY_AND_COMPANY-US200912003760

PATIENT
  Sex: Female

DRUGS (3)
  1. HUMALOG [Suspect]
     Indication: DIABETES MELLITUS
     Dosage: UNK, AS NEEDED
     Dates: start: 19990101
  2. HUMALOG [Suspect]
     Dosage: UNK, AS NEEDED
     Dates: start: 19990101
  3. LANTUS [Concomitant]
     Dosage: 25 U, EACH EVENING

REACTIONS (5)
  - BLOOD GLUCOSE INCREASED [None]
  - CARDIAC FAILURE CONGESTIVE [None]
  - KNEE ARTHROPLASTY [None]
  - PAIN [None]
  - PNEUMONIA [None]
